FAERS Safety Report 10691074 (Version 1)
Quarter: 2015Q1

REPORT INFORMATION
  Report Type: Spontaneous
  Country: US (occurrence: None)
  Receive Date: 20150102
  Receipt Date: 20150102
  Transmission Date: 20150720
  Serious: Yes (Other)
  Sender: FDA-Public Use
  Company Number: 001846976A

PATIENT
  Age: 21 Year
  Sex: Male

DRUGS (4)
  1. PROACTIV RENEWING CLEANSER [Suspect]
     Active Substance: BENZOYL PEROXIDE
     Indication: ACNE
     Dosage: TWICE DAILY DERMAL
     Route: 023
     Dates: start: 20121217, end: 20121231
  2. PROACTIV SOLUTION ADVANCED DAILY OIL CONTROL [Suspect]
     Active Substance: SALICYLIC ACID
     Indication: ACNE
     Dosage: TWICE DAILY DERMAL
     Route: 023
     Dates: start: 20121217, end: 20121231
  3. PROACTIV REPAIRING TREATMENT [Suspect]
     Active Substance: BENZOYL PEROXIDE
     Indication: ACNE
     Dosage: TWICE DAILY DERMAL
     Route: 023
     Dates: start: 20121217, end: 20121231
  4. PROACTIV SKIN LIGHTENING [Suspect]
     Active Substance: HYDROQUINONE
     Indication: ACNE
     Dosage: TWICE DAILY DERMAL
     Route: 023
     Dates: start: 20121217, end: 20121231

REACTIONS (2)
  - Skin infection [None]
  - Hypersensitivity [None]

NARRATIVE: CASE EVENT DATE: 20121231
